FAERS Safety Report 17865584 (Version 2)
Quarter: 2020Q2

REPORT INFORMATION
  Report Type: Spontaneous
  Country: GB (occurrence: GB)
  Receive Date: 20200605
  Receipt Date: 20200611
  Transmission Date: 20200714
  Serious: Yes (Hospitalization)
  Sender: FDA-Public Use
  Company Number: GB-PFIZER INC-2020219365

PATIENT
  Age: 64 Year
  Sex: Female

DRUGS (1)
  1. XELJANZ [Suspect]
     Active Substance: TOFACITINIB CITRATE
     Dosage: 5 MG

REACTIONS (7)
  - Gastric ulcer [Unknown]
  - Diarrhoea haemorrhagic [Unknown]
  - Dehydration [Unknown]
  - Dizziness [Unknown]
  - Decreased appetite [Unknown]
  - Gastric haemorrhage [Unknown]
  - Infection [Unknown]
